FAERS Safety Report 7341475-8 (Version None)
Quarter: 2011Q1

REPORT INFORMATION
  Report Type: 
  Country: None (occurrence: None)
  Receive Date: 20110309
  Receipt Date: 20110222
  Transmission Date: 20110831
  Serious: No
  Sender: FDA-Public Use
  Company Number: US-BAYER-201034866NA

PATIENT
  Sex: Female

DRUGS (4)
  1. YASMIN [Suspect]
     Indication: ACNE
  2. ULTRAM [Concomitant]
  3. OCELLA [Suspect]
     Indication: ACNE
  4. YAZ [Suspect]
     Indication: ACNE

REACTIONS (1)
  - INJURY [None]
